FAERS Safety Report 19477250 (Version 1)
Quarter: 2021Q2

REPORT INFORMATION
  Report Type: Spontaneous
  Country: US (occurrence: US)
  Receive Date: 20210630
  Receipt Date: 20210630
  Transmission Date: 20210717
  Serious: No
  Sender: FDA-Public Use
  Company Number: None

PATIENT
  Age: 70 Year
  Sex: Male

DRUGS (1)
  1. APIXABAN (APIXABAN 5MG TAB) [Suspect]
     Active Substance: APIXABAN
     Dates: start: 20210619, end: 20210622

REACTIONS (7)
  - Gastric ulcer [None]
  - Polypectomy [None]
  - Gastritis [None]
  - Gastric haemorrhage [None]
  - Toothache [None]
  - Hiatus hernia [None]
  - Diverticulum [None]

NARRATIVE: CASE EVENT DATE: 20210621
